FAERS Safety Report 12823810 (Version 1)
Quarter: 2016Q4

REPORT INFORMATION
  Report Type: Spontaneous
  Country: US (occurrence: US)
  Receive Date: 20161007
  Receipt Date: 20161007
  Transmission Date: 20170207
  Serious: No
  Sender: FDA-Public Use
  Company Number: US-GLAXOSMITHKLINE-US2016145755

PATIENT
  Sex: Male

DRUGS (1)
  1. NICODERM CQ [Suspect]
     Active Substance: NICOTINE
     Indication: TOBACCO USER
     Dosage: 14 MG, UNK
     Dates: start: 20161004

REACTIONS (2)
  - Nausea [Not Recovered/Not Resolved]
  - Intentional product misuse [Recovered/Resolved with Sequelae]

NARRATIVE: CASE EVENT DATE: 20161004
